FAERS Safety Report 24903728 (Version 1)
Quarter: 2025Q1

REPORT INFORMATION
  Report Type: Spontaneous
  Country: AR (occurrence: AR)
  Receive Date: 20250130
  Receipt Date: 20250130
  Transmission Date: 20250409
  Serious: Yes (Other)
  Sender: BOEHRINGER INGELHEIM
  Company Number: AR-BoehringerIngelheim-2025-BI-004352

PATIENT
  Age: 57 Year
  Sex: Male
  Weight: 96 kg

DRUGS (4)
  1. JARDIANCE [Suspect]
     Active Substance: EMPAGLIFLOZIN
     Indication: Cardiac failure
  2. ENALAPRIL [Concomitant]
     Active Substance: ENALAPRIL
     Indication: Product used for unknown indication
  3. SPIRONOLACTONE [Concomitant]
     Active Substance: SPIRONOLACTONE
     Indication: Product used for unknown indication
  4. CARVEDILOL [Concomitant]
     Active Substance: CARVEDILOL
     Indication: Product used for unknown indication

REACTIONS (2)
  - No adverse event [Unknown]
  - Cardiac failure chronic [Unknown]

NARRATIVE: CASE EVENT DATE: 20230801
